FAERS Safety Report 20590471 (Version 3)
Quarter: 2022Q2

REPORT INFORMATION
  Report Type: Spontaneous
  Country: US (occurrence: US)
  Receive Date: 20220314
  Receipt Date: 20220410
  Transmission Date: 20220721
  Serious: Yes (Other)
  Sender: FDA-Public Use
  Company Number: US-JNJFOC-20220314164

PATIENT
  Age: 72 Year
  Sex: Male
  Weight: 57.204 kg

DRUGS (1)
  1. ZYTIGA [Suspect]
     Active Substance: ABIRATERONE ACETATE
     Indication: Product used for unknown indication
     Dosage: 250 MG X 4?LAST DOSE WAS ADMINISTERED ON 17-MAR-2022.
     Route: 048
     Dates: start: 20211217

REACTIONS (4)
  - Retinal injury [Unknown]
  - Eye inflammation [Not Recovered/Not Resolved]
  - Sinusitis [Not Recovered/Not Resolved]
  - Sciatica [Not Recovered/Not Resolved]

NARRATIVE: CASE EVENT DATE: 20220303
